FAERS Safety Report 5595800-9 (Version None)
Quarter: 2008Q1

REPORT INFORMATION
  Report Type: 
  Country: None (occurrence: None)
  Receive Date: 20080118
  Receipt Date: 20080115
  Transmission Date: 20080703
  Serious: Yes (Life-Threatening, Hospitalization)
  Sender: FDA-Public Use
  Company Number: D0055828A

PATIENT
  Age: 10 Year
  Sex: Female

DRUGS (4)
  1. LAMICTAL [Suspect]
     Route: 048
     Dates: start: 20040301, end: 20040311
  2. BENADRYL [Suspect]
     Route: 048
     Dates: start: 20040304
  3. SUDAFED 12 HOUR [Suspect]
     Route: 048
     Dates: start: 20040308, end: 20040309
  4. DEPAKOTE [Concomitant]
     Indication: EPILEPSY
     Route: 048
     Dates: start: 20020101

REACTIONS (15)
  - BLISTER [None]
  - CONJUNCTIVITIS [None]
  - ELECTROLYTE SUBSTITUTION THERAPY [None]
  - GENITAL EROSION [None]
  - LIP SWELLING [None]
  - NASOPHARYNGITIS [None]
  - NIKOLSKY'S SIGN [None]
  - ORAL MUCOSA EROSION [None]
  - PAIN [None]
  - PRURITUS [None]
  - PYREXIA [None]
  - RASH [None]
  - RASH MACULAR [None]
  - SKIN EROSION [None]
  - TOXIC EPIDERMAL NECROLYSIS [None]
